FAERS Safety Report 17814337 (Version 1)
Quarter: 2020Q2

REPORT INFORMATION
  Report Type: Spontaneous
  Country: GB (occurrence: GB)
  Receive Date: 20200521
  Receipt Date: 20200521
  Transmission Date: 20200714
  Serious: Yes (Death, Hospitalization)
  Sender: FDA-Public Use
  Company Number: GB-JNJFOC-20200524349

PATIENT
  Age: 76 Year
  Sex: Female

DRUGS (1)
  1. PARACETAMOL [Suspect]
     Active Substance: ACETAMINOPHEN
     Indication: PAIN
     Dosage: UNKNOWN
     Route: 048
     Dates: start: 20200222, end: 20200225

REACTIONS (7)
  - Metabolic acidosis [Unknown]
  - Hypophagia [Unknown]
  - Hypotension [Unknown]
  - Acute hepatic failure [Fatal]
  - Jaundice [Unknown]
  - Acute kidney injury [Unknown]
  - Hypoglycaemia [Unknown]

NARRATIVE: CASE EVENT DATE: 20200225
